FAERS Safety Report 5653114-2 (Version None)
Quarter: 2008Q1

REPORT INFORMATION
  Report Type: 
  Country: None (occurrence: None)
  Receive Date: 20080131
  Receipt Date: 20071014
  Transmission Date: 20080703
  Serious: No
  Sender: FDA-Public Use
  Company Number: US200710003684

PATIENT
  Age: 54 Year
  Sex: Female

DRUGS (3)
  1. BYETTA [Suspect]
     Dosage: 5 UG, 2/D, SUBCUTANEOUS
     Route: 058
     Dates: start: 20071010
  2. EXENATIDE 5MCG PEN, DISPOSABLE DEVICE [Concomitant]
  3. AMARYL [Concomitant]

REACTIONS (4)
  - FEELING JITTERY [None]
  - MALAISE [None]
  - NAUSEA [None]
  - NERVOUSNESS [None]
